FAERS Safety Report 12773887 (Version 1)
Quarter: 2016Q3

REPORT INFORMATION
  Report Type: Spontaneous
  Country: US (occurrence: US)
  Receive Date: 20160923
  Receipt Date: 20160923
  Transmission Date: 20161109
  Serious: Yes (Other)
  Sender: FDA-Public Use
  Company Number: US-ZYDUS-012104

PATIENT
  Age: 62 Year
  Sex: Male

DRUGS (2)
  1. INTERFERON [Suspect]
     Active Substance: INTERFERON
     Indication: ANTIVIRAL TREATMENT
     Route: 065
  2. RIBAVIRIN. [Suspect]
     Active Substance: RIBAVIRIN
     Indication: ANTIVIRAL TREATMENT
     Route: 065

REACTIONS (4)
  - Treatment failure [Recovered/Resolved]
  - Hepatitis C RNA [Recovered/Resolved]
  - Hepatitis C [Recovered/Resolved]
  - Viral load increased [Recovered/Resolved]
